FAERS Safety Report 6915333-4 (Version None)
Quarter: 2010Q3

REPORT INFORMATION
  Report Type: 
  Country: None (occurrence: None)
  Receive Date: 20100809
  Receipt Date: 20091231
  Transmission Date: 20110219
  Serious: No
  Sender: FDA-Public Use
  Company Number: US-ABBOTT-10P-163-0617776-00

PATIENT
  Sex: Female
  Weight: 62.652 kg

DRUGS (4)
  1. DEPAKOTE ER [Suspect]
     Indication: BIPOLAR DISORDER
     Dosage: 750 AND 1000 ALTERNATE DAYS
     Dates: start: 20000101
  2. ZYPREXA [Suspect]
     Indication: BIPOLAR DISORDER
  3. SYNTHROID [Concomitant]
     Indication: HYPOTHYROIDISM
  4. ALLOPURINOL [Concomitant]
     Indication: PRODUCT USED FOR UNKNOWN INDICATION

REACTIONS (1)
  - SOMNOLENCE [None]
